FAERS Safety Report 4407460-0 (Version None)
Quarter: 2004Q3

REPORT INFORMATION
  Report Type: 
  Country: None (occurrence: None)
  Receive Date: 20040721
  Receipt Date: 20040623
  Transmission Date: 20050211
  Serious: No
  Sender: FDA-Public Use
  Company Number: A01200403158

PATIENT
  Age: 81 Year
  Sex: Female

DRUGS (4)
  1. PLAVIX [Suspect]
     Dosage: 75 MG QD ORAL
     Route: 048
     Dates: start: 20001105
  2. COTAREG (GALENIC /HYDROCHLOROTHIAZIDE/VALSARTAN/) [Concomitant]
  3. LODOZ (BISOPROLOL FUMARATE + HYDROCHLOROTHIAZIDE) [Concomitant]
  4. PRAVASTATIN [Concomitant]

REACTIONS (1)
  - VARICOSE ULCERATION [None]
